FAERS Safety Report 12113862 (Version 1)
Quarter: 2016Q1

REPORT INFORMATION
  Report Type: Spontaneous
  Country: US (occurrence: None)
  Receive Date: 20160223
  Receipt Date: 20160223
  Transmission Date: 20160526
  Serious: Yes (Other)
  Sender: FDA-Public Use
  Company Number: None

PATIENT
  Age: 38 Year
  Sex: Female
  Weight: 52.16 kg

DRUGS (5)
  1. PRILOSEC [Concomitant]
     Active Substance: OMEPRAZOLE MAGNESIUM
  2. NONI JUICE [Concomitant]
     Active Substance: NONI FRUIT JUICE
  3. PROAIR HFA [Suspect]
     Active Substance: ALBUTEROL SULFATE
     Indication: ASTHMA
     Dosage: 2 PUFFS AS NEEDED INHALATION?1 TIME
     Route: 055
  4. NASONEX [Concomitant]
     Active Substance: MOMETASONE FUROATE
  5. HIMALAYAN SALT GARGLE [Concomitant]

REACTIONS (2)
  - Anosmia [None]
  - Nasal congestion [None]

NARRATIVE: CASE EVENT DATE: 20160221
